FAERS Safety Report 9657861 (Version 1)
Quarter: 2013Q4

REPORT INFORMATION
  Report Type: Spontaneous
  Country: GB (occurrence: None)
  Receive Date: 20131029
  Receipt Date: 20131029
  Transmission Date: 20140711
  Serious: Yes (Other)
  Sender: FDA-Public Use
  Company Number: AUR-APL-2013-08732

PATIENT
  Age: 66 Year
  Sex: Female
  Weight: 60 kg

DRUGS (9)
  1. GABAPENTIN [Suspect]
     Indication: NEURALGIA
     Dosage: 900 MG (300 MG, 3 IN 1 D), ORAL
     Dates: start: 20130829, end: 20130830
  2. CLOPIDOGREL (CLOPIDOGREL) [Concomitant]
  3. FERROUS FUMARATE (FERROUS FUMARATE) [Concomitant]
  4. LEVETIRACETAM (LEVETIRACETAM) [Concomitant]
  5. OMEPRAZOLE (OMEPRAZOLE) [Concomitant]
  6. RAMIPRIL (RAMIPRIL) [Concomitant]
  7. SIMVASTATIN (SIMVASTATIM) [Concomitant]
  8. THIAMINE (THIAMINE) [Concomitant]
  9. VENLAFAXINE (VENLAFAXINE) [Concomitant]

REACTIONS (3)
  - Partial seizures [None]
  - Condition aggravated [None]
  - Neuralgia [None]
